FAERS Safety Report 8439672-3 (Version None)
Quarter: 2012Q2

REPORT INFORMATION
  Report Type: 
  Country: None (occurrence: None)
  Receive Date: 20120615
  Receipt Date: 20120612
  Transmission Date: 20120825
  Serious: No
  Sender: FDA-Public Use
  Company Number: US-PFIZER INC-2012141546

PATIENT
  Sex: Male
  Weight: 82.993 kg

DRUGS (3)
  1. LYRICA [Suspect]
     Dosage: 50 MG TWOCAPSULES, DAILY
     Route: 048
     Dates: start: 20120601, end: 20120601
  2. LYRICA [Suspect]
     Dosage: 50 MG, DAILY
     Route: 048
     Dates: start: 20120601, end: 20120610
  3. LYRICA [Suspect]
     Indication: SCIATICA
     Dosage: 50 MG THREE CAPSULES, DAILY
     Route: 048
     Dates: start: 20120601, end: 20120601

REACTIONS (2)
  - SYNCOPE [None]
  - RASH GENERALISED [None]
